FAERS Safety Report 7769791-6 (Version None)
Quarter: 2011Q3

REPORT INFORMATION
  Report Type: 
  Country: None (occurrence: None)
  Receive Date: 20110922
  Receipt Date: 20100517
  Transmission Date: 20111222
  Serious: No
  Sender: FDA-Public Use
  Company Number: US-ASTRAZENECA-2010SE39661

PATIENT
  Age: 21320 Day
  Sex: Male

DRUGS (8)
  1. SEROQUEL [Suspect]
     Route: 048
     Dates: start: 20060123
  2. TERAZOSIN HCL [Concomitant]
     Dates: start: 20060123
  3. BUPROPION HYDROCHLORIDE [Concomitant]
     Indication: DEPRESSION
     Dates: start: 20070821
  4. LISINOPRIL [Concomitant]
     Dates: start: 20060123
  5. OMEPRAZOLE [Concomitant]
     Route: 048
     Dates: start: 20060123
  6. LORAZEPAM [Concomitant]
     Dates: start: 20060123
  7. PAROXETINE HYDROCHLORIDE [Concomitant]
     Dates: start: 20060123
  8. PROGRAF [Concomitant]
     Dosage: 3 MG PO Q. 12 HR
     Route: 048
     Dates: start: 20060123

REACTIONS (6)
  - RENAL FAILURE CHRONIC [None]
  - ADJUSTMENT DISORDER [None]
  - ANXIETY [None]
  - HYPOGLYCAEMIA [None]
  - TYPE 2 DIABETES MELLITUS [None]
  - BENIGN PROSTATIC HYPERPLASIA [None]
